FAERS Safety Report 9359923 (Version 1)
Quarter: 2013Q2

REPORT INFORMATION
  Report Type: Spontaneous
  Country: US (occurrence: US)
  Receive Date: 20130621
  Receipt Date: 20130621
  Transmission Date: 20140414
  Serious: No
  Sender: FDA-Public Use
  Company Number: US-US-EMD SERONO, INC.-7058856

PATIENT
  Sex: Female

DRUGS (2)
  1. REBIF [Suspect]
     Indication: MULTIPLE SCLEROSIS
     Route: 058
     Dates: start: 20100209, end: 201006
  2. LEXAPRO [Concomitant]
     Indication: MUSCLE RELAXANT THERAPY

REACTIONS (3)
  - Premature delivery [Recovering/Resolving]
  - Normal newborn [Recovered/Resolved]
  - Maternal exposure timing unspecified [Unknown]
